FAERS Safety Report 6739276-4 (Version None)
Quarter: 2010Q2

REPORT INFORMATION
  Report Type: 
  Country: None (occurrence: None)
  Receive Date: 20100525
  Receipt Date: 20100511
  Transmission Date: 20101027
  Serious: Yes (Other)
  Sender: FDA-Public Use
  Company Number: PHHY2010US30901

PATIENT
  Sex: Female

DRUGS (1)
  1. ZADITOR [Suspect]
     Dosage: UNK
     Dates: start: 20100505

REACTIONS (3)
  - EYE PRURITUS [None]
  - SPEECH DISORDER [None]
  - SWOLLEN TONGUE [None]
